FAERS Safety Report 9167811 (Version 2)
Quarter: 2013Q2

REPORT INFORMATION
  Report Type: Report from Study
  Country: TR (occurrence: TR)
  Receive Date: 20130318
  Receipt Date: 20130408
  Transmission Date: 20140414
  Serious: Yes (Death, Other)
  Sender: FDA-Public Use
  Company Number: PHHY2013TR011435

PATIENT
  Age: 69 Year
  Sex: Male
  Weight: 60 kg

DRUGS (2)
  1. TASIGNA [Suspect]
     Indication: CHRONIC MYELOID LEUKAEMIA
     Dosage: 800 MG/DAY
     Route: 048
     Dates: start: 20100803
  2. TASIGNA [Suspect]
     Dosage: 400 MG/DAY
     Route: 048
     Dates: start: 201103

REACTIONS (6)
  - Death [Fatal]
  - Diabetes mellitus [Not Recovered/Not Resolved]
  - Blood glucose increased [Recovered/Resolved]
  - Prostatic disorder [Unknown]
  - Haemorrhoids [Unknown]
  - Loss of consciousness [Unknown]
